FAERS Safety Report 6248020-9 (Version None)
Quarter: 2009Q2

REPORT INFORMATION
  Report Type: 
  Country: None (occurrence: None)
  Receive Date: 20090626
  Receipt Date: 20090617
  Transmission Date: 20091009
  Serious: Yes (Hospitalization)
  Sender: FDA-Public Use
  Company Number: FR-ABBOTT-09P-056-0580248-00

PATIENT
  Sex: Female

DRUGS (8)
  1. MONOZECLAR TABLETS [Suspect]
     Indication: DRUG USE FOR UNKNOWN INDICATION
     Route: 048
     Dates: start: 20090518, end: 20090522
  2. PROTELOS [Suspect]
     Indication: OSTEOPOROSIS
     Route: 048
     Dates: start: 20090417, end: 20090520
  3. STERDEX [Concomitant]
     Indication: DRUG USE FOR UNKNOWN INDICATION
  4. DACRYOSERUM [Concomitant]
     Indication: DRUG USE FOR UNKNOWN INDICATION
  5. AERIUS [Concomitant]
     Indication: DRUG USE FOR UNKNOWN INDICATION
  6. SOLUPRED [Concomitant]
     Indication: DRUG USE FOR UNKNOWN INDICATION
     Route: 048
  7. DOLIPRANE [Concomitant]
     Indication: DRUG USE FOR UNKNOWN INDICATION
  8. LEVOTHYROX [Concomitant]
     Indication: THYROIDECTOMY

REACTIONS (6)
  - APHTHOUS STOMATITIS [None]
  - DYSPHAGIA [None]
  - EYE DISORDER [None]
  - ORAL DISORDER [None]
  - PHARYNGEAL DISORDER [None]
  - STEVENS-JOHNSON SYNDROME [None]
